FAERS Safety Report 11717937 (Version 2)
Quarter: 2015Q4

REPORT INFORMATION
  Report Type: Spontaneous
  Country: JP (occurrence: JP)
  Receive Date: 20151110
  Receipt Date: 20151214
  Transmission Date: 20160304
  Serious: Yes (Hospitalization)
  Sender: FDA-Public Use
  Company Number: JP-ORION CORPORATION ORION PHARMA-ENT 2015-1025

PATIENT
  Age: 79 Year
  Sex: Male

DRUGS (4)
  1. COMTAN [Suspect]
     Active Substance: ENTACAPONE
     Indication: PARKINSON^S DISEASE
     Route: 048
  2. SELEGELINE HCL [Suspect]
     Active Substance: SELEGILINE HYDROCHLORIDE
     Indication: PARKINSON^S DISEASE
     Route: 048
  3. L DOPA [Concomitant]
     Active Substance: LEVODOPA
     Route: 065
  4. SELEGELINE HCL [Suspect]
     Active Substance: SELEGILINE HYDROCHLORIDE
     Route: 048

REACTIONS (4)
  - Dementia [Recovering/Resolving]
  - Apathy [Recovering/Resolving]
  - Drug effect decreased [None]
  - Parkinsonism [Recovering/Resolving]
